FAERS Safety Report 8279200-9 (Version None)
Quarter: 2012Q2

REPORT INFORMATION
  Report Type: 
  Country: None (occurrence: None)
  Receive Date: 20120412
  Receipt Date: 20120305
  Transmission Date: 20120825
  Serious: No
  Sender: FDA-Public Use
  Company Number: US-ASTRAZENECA-2011SE54604

PATIENT
  Age: 60 Year
  Sex: Female
  Weight: 74.8 kg

DRUGS (7)
  1. LOSARTAN POTASSIUM [Concomitant]
     Indication: BLOOD PRESSURE ABNORMAL
  2. EFFEXOR XR [Concomitant]
     Indication: DEPRESSION
  3. NEXIUM [Suspect]
     Indication: GASTROOESOPHAGEAL REFLUX DISEASE
     Route: 048
     Dates: start: 20090101
  4. SEROQUEL [Suspect]
     Indication: MAJOR DEPRESSION
     Route: 048
     Dates: start: 20090101
  5. NON DROWSY ALLERGY RELEASE MEDICATION [Concomitant]
     Indication: HYPERSENSITIVITY
  6. SEROQUEL [Suspect]
     Route: 048
  7. WARFARIN SODIUM [Concomitant]
     Indication: ANTICOAGULANT THERAPY

REACTIONS (4)
  - OROPHARYNGEAL PAIN [None]
  - DRUG DOSE OMISSION [None]
  - HYPERSENSITIVITY [None]
  - MALAISE [None]
